FAERS Safety Report 5065465-3 (Version None)
Quarter: 2006Q3

REPORT INFORMATION
  Report Type: 
  Country: None (occurrence: None)
  Receive Date: 20060707
  Receipt Date: 20060508
  Transmission Date: 20061208
  Serious: Yes (Other)
  Sender: FDA-Public Use
  Company Number: HQWYE305112MAY06

PATIENT
  Age: 41 Year
  Sex: Female
  Weight: 74.91 kg

DRUGS (1)
  1. AXID AR [Suspect]
     Indication: GASTRIC DISORDER
     Dosage: 1 TABLET X 1, ORAL
     Route: 048
     Dates: start: 20010101, end: 20010101

REACTIONS (2)
  - LOSS OF CONSCIOUSNESS [None]
  - URTICARIA [None]
